FAERS Safety Report 10146124 (Version 1)
Quarter: 2014Q2

REPORT INFORMATION
  Report Type: Spontaneous
  Country: US (occurrence: None)
  Receive Date: 20140430
  Receipt Date: 20140430
  Transmission Date: 20141212
  Serious: Yes (Hospitalization)
  Sender: FDA-Public Use
  Company Number: None

PATIENT
  Age: 76 Year
  Sex: Male

DRUGS (1)
  1. LIPOSOMAL DOXORUBICIN [Suspect]
     Indication: ILL-DEFINED DISORDER
     Route: 042
     Dates: start: 20140328

REACTIONS (6)
  - Flushing [None]
  - Discomfort [None]
  - Hypotension [None]
  - Oxygen saturation decreased [None]
  - Unresponsive to stimuli [None]
  - Cardio-respiratory arrest [None]
